FAERS Safety Report 8926586 (Version 1)
Quarter: 2012Q4

REPORT INFORMATION
  Report Type: Report from Study
  Country: IT (occurrence: IT)
  Receive Date: 20121127
  Receipt Date: 20121127
  Transmission Date: 20130627
  Serious: Yes (Death)
  Sender: FDA-Public Use
  Company Number: IT-SANOFI-AVENTIS-2012SA086217

PATIENT

DRUGS (8)
  1. DOCETAXEL [Suspect]
     Indication: METASTATIC GASTRIC CANCER
     Dosage: as 1-h infusion in 250 ml of normal saline solution, on day 1 every 3 weeks
     Route: 065
  2. FLUOROURACIL [Suspect]
     Indication: METASTATIC GASTRIC CANCER
     Dosage: 48-h continuous infusion starting on day 1, 4 biweekly cycles were administered
     Route: 065
  3. CISPLATIN [Suspect]
     Indication: METASTATIC GASTRIC CANCER
     Dosage: 30-min infusion on day 1, 4-biweekly cycles were administered
     Route: 065
  4. LEUCOVORIN [Suspect]
     Indication: METASTATIC GASTRIC CANCER
     Dosage: drug was diluted in 250 ml normal saline solution in a 2-h infusion, 4 biweekly cycles administered
     Route: 065
  5. ANTIEMETICS AND ANTINAUSEANTS [Concomitant]
     Indication: PROPHYLAXIS
  6. DEXAMETHASONE [Concomitant]
     Dosage: administered 24, 12, and 1 h before drug infusion and 8 mg twice daily for an additional 2 days
  7. NORMAL SALINE [Concomitant]
     Dosage: leucovorin diluted in 250 ml normal saline solution in 2-hour infusion
  8. NORMAL SALINE [Concomitant]
     Dosage: docetaxel given as a 1-hour infusion in 250 ml of normal saline solution on day 1 every 3 weeks

REACTIONS (2)
  - Febrile neutropenia [Fatal]
  - Diarrhoea [Fatal]
